FAERS Safety Report 14504661 (Version 1)
Quarter: 2018Q1

REPORT INFORMATION
  Report Type: Report from Study
  Country: ID (occurrence: ID)
  Receive Date: 20180208
  Receipt Date: 20180208
  Transmission Date: 20180509
  Serious: Yes (Death, Hospitalization, Other)
  Sender: FDA-Public Use
  Company Number: ID-BAYER-2017-207230

PATIENT
  Age: 82 Year
  Sex: Male

DRUGS (2)
  1. NEXAVAR [Suspect]
     Active Substance: SORAFENIB
     Indication: HEPATOCELLULAR CARCINOMA
     Dosage: 200 MG, BID
     Route: 048
     Dates: start: 20171003
  2. NEXAVAR [Suspect]
     Active Substance: SORAFENIB
     Indication: HEPATOCELLULAR CARCINOMA
     Dosage: 200 MG, BID
     Route: 048
     Dates: start: 20171111, end: 20180102

REACTIONS (33)
  - Shock [None]
  - Oropharyngeal discomfort [None]
  - Intra-abdominal fluid collection [None]
  - Increased upper airway secretion [None]
  - Anal incontinence [Not Recovered/Not Resolved]
  - Blood test abnormal [Not Recovered/Not Resolved]
  - Speech disorder [None]
  - Hypotension [None]
  - Abdominal pain upper [None]
  - Abdominal distension [Not Recovered/Not Resolved]
  - Food refusal [Not Recovered/Not Resolved]
  - Arrhythmia [None]
  - Pain [Fatal]
  - Dyschezia [None]
  - Heart rate decreased [None]
  - Pulse absent [None]
  - Diarrhoea [Recovered/Resolved]
  - Pollakiuria [Not Recovered/Not Resolved]
  - Cough [None]
  - Eye disorder [None]
  - Nausea [Not Recovered/Not Resolved]
  - Constipation [Not Recovered/Not Resolved]
  - Blood albumin decreased [Not Recovered/Not Resolved]
  - Depressed level of consciousness [None]
  - Palmar-plantar erythrodysaesthesia syndrome [Not Recovered/Not Resolved]
  - Productive cough [None]
  - Ascites [Not Recovered/Not Resolved]
  - Coma [None]
  - Abdominal pain upper [Not Recovered/Not Resolved]
  - Influenza [Not Recovered/Not Resolved]
  - Condition aggravated [None]
  - Asthenia [None]
  - Abdominal pain lower [Not Recovered/Not Resolved]

NARRATIVE: CASE EVENT DATE: 20171006
